FAERS Safety Report 25024276 (Version 1)
Quarter: 2025Q1

REPORT INFORMATION
  Report Type: Report from Study
  Country: US (occurrence: US)
  Receive Date: 20250228
  Receipt Date: 20250228
  Transmission Date: 20250409
  Serious: Yes (Death, Other)
  Sender: ROCHE
  Company Number: US-ROCHE-10000217365

PATIENT

DRUGS (4)
  1. MYCOPHENOLATE MOFETIL [Suspect]
     Active Substance: MYCOPHENOLATE MOFETIL
     Indication: Prophylaxis against transplant rejection
     Route: 065
  2. RITUXIMAB [Suspect]
     Active Substance: RITUXIMAB
     Indication: Prophylaxis against transplant rejection
     Route: 065
  3. TACROLIMUS [Suspect]
     Active Substance: TACROLIMUS
     Indication: Prophylaxis against transplant rejection
     Route: 065
  4. SULFAMETHOXAZOLE\TRIMETHOPRIM [Concomitant]
     Active Substance: SULFAMETHOXAZOLE\TRIMETHOPRIM

REACTIONS (24)
  - Cytomegalovirus infection [Unknown]
  - Sepsis [Unknown]
  - Haematological infection [Unknown]
  - Clostridium difficile infection [Unknown]
  - Lower respiratory tract infection [Unknown]
  - Respiratory tract infection viral [Unknown]
  - Gastrointestinal infection [Unknown]
  - Urinary tract infection [Unknown]
  - Epstein-Barr virus infection [Unknown]
  - Human herpesvirus 6 infection [Unknown]
  - Pyrexia [Unknown]
  - Neutropenia [Unknown]
  - Febrile neutropenia [Unknown]
  - Peritonitis [Unknown]
  - Post procedural infection [Unknown]
  - Cholangitis [Unknown]
  - Wound infection [Unknown]
  - Abdominal abscess [Unknown]
  - Post transplant lymphoproliferative disorder [Fatal]
  - Adenovirus infection [Unknown]
  - Necrotising colitis [Unknown]
  - Cellulitis [Unknown]
  - Otitis media acute [Unknown]
  - Oral herpes [Unknown]
